FAERS Safety Report 4415951-1 (Version None)
Quarter: 2004Q3

REPORT INFORMATION
  Report Type: 
  Country: None (occurrence: None)
  Receive Date: 20040803
  Receipt Date: 20040803
  Transmission Date: 20050211
  Serious: Yes (Life-Threatening)
  Sender: FDA-Public Use
  Company Number: None

PATIENT
  Sex: Male
  Weight: 79.3795 kg

DRUGS (1)
  1. TAXOL [Suspect]
     Dates: start: 20040408

REACTIONS (4)
  - ANGINA PECTORIS [None]
  - DEVICE FAILURE [None]
  - HYPOTENSION [None]
  - MEDICAL DEVICE COMPLICATION [None]
